FAERS Safety Report 26102391 (Version 3)
Quarter: 2025Q4

REPORT INFORMATION
  Report Type: Spontaneous
  Country: JP (occurrence: JP)
  Receive Date: 20251128
  Receipt Date: 20251226
  Transmission Date: 20260118
  Serious: Yes (Death, Hospitalization)
  Sender: BOEHRINGER INGELHEIM
  Company Number: JP-Komodo Health-a23aa00000AeWcvAAF

PATIENT
  Age: 88 Year
  Sex: Male
  Weight: 56 kg

DRUGS (6)
  1. DABIGATRAN ETEXILATE MESYLATE [Suspect]
     Active Substance: DABIGATRAN ETEXILATE MESYLATE
     Indication: Retinal artery occlusion
     Dates: start: 20250821, end: 20251005
  2. DABIGATRAN ETEXILATE MESYLATE [Suspect]
     Active Substance: DABIGATRAN ETEXILATE MESYLATE
     Dosage: 30 CAPSULES
     Dates: start: 20251006, end: 20251006
  3. LEVETIRACETAM [Concomitant]
     Active Substance: LEVETIRACETAM
     Indication: Epilepsy
     Dosage: 250 MG X 10 (MORNING 2, NOON 4, EVENING 4).
  4. MAGNESIUM OXIDE [Concomitant]
     Active Substance: MAGNESIUM OXIDE
     Indication: Product used for unknown indication
  5. IRBESARTAN [Concomitant]
     Active Substance: IRBESARTAN
     Indication: Product used for unknown indication
  6. Rebamipide (Otsuka) [Concomitant]
     Indication: Product used for unknown indication

REACTIONS (4)
  - Circulatory collapse [Fatal]
  - International normalised ratio abnormal [Recovered/Resolved]
  - Activated partial thromboplastin time abnormal [Recovered/Resolved]
  - Accidental overdose [Unknown]

NARRATIVE: CASE EVENT DATE: 20251006
